FAERS Safety Report 9605727 (Version 1)
Quarter: 2013Q4

REPORT INFORMATION
  Report Type: Spontaneous
  Country: JP (occurrence: JP)
  Receive Date: 20131008
  Receipt Date: 20131008
  Transmission Date: 20140711
  Serious: Yes (Death, Hospitalization)
  Sender: FDA-Public Use
  Company Number: JP-MYLANLABS-2013S1021710

PATIENT
  Age: 7 Year
  Sex: Female

DRUGS (4)
  1. LAMOTRIGINE [Suspect]
     Indication: EPILEPSY
     Dosage: DOSAGE GRADUALLY INCREASED TO 20MG/DAY; THEN INCREASED TO 25MG/DAY AFTER 4MO
     Route: 065
  2. LAMOTRIGINE [Suspect]
     Indication: EPILEPSY
     Dosage: 25MG/DAY
     Route: 065
  3. TOPIRAMATE [Concomitant]
     Indication: EPILEPSY
     Dosage: GRADUALLY DECREASED BEFORE BEING DISCONTINUED AFTER START OF LAMOTRIGINE
     Route: 065
  4. SODIUM VALPROATE [Concomitant]
     Indication: EPILEPSY
     Route: 065

REACTIONS (3)
  - Drug reaction with eosinophilia and systemic symptoms [Fatal]
  - Myocarditis [Fatal]
  - Thyroid disorder [Fatal]
